FAERS Safety Report 9656461 (Version 1)
Quarter: 2013Q4

REPORT INFORMATION
  Report Type: Spontaneous
  Country: CH (occurrence: None)
  Receive Date: 20131028
  Receipt Date: 20131028
  Transmission Date: 20140711
  Serious: Yes (Other)
  Sender: FDA-Public Use
  Company Number: 20130554

PATIENT
  Age: 33 Year
  Sex: Female

DRUGS (1)
  1. FERINJECT [Suspect]
     Dosage: 500 MG, 2 TOTAL, INTRAVENOUS DRIP
     Route: 041
     Dates: start: 20130213, end: 20130308

REACTIONS (2)
  - Tremor [None]
  - Paraesthesia [None]
